FAERS Safety Report 12271388 (Version 1)
Quarter: 2016Q2

REPORT INFORMATION
  Report Type: Report from Study
  Country: US (occurrence: US)
  Receive Date: 20160415
  Receipt Date: 20160415
  Transmission Date: 20160815
  Serious: Yes (Hospitalization, Other)
  Sender: FDA-Public Use
  Company Number: US-ABBVIE-16K-163-1580135-00

PATIENT
  Age: 48 Year
  Sex: Female
  Weight: 74.46 kg

DRUGS (4)
  1. HUMIRA [Suspect]
     Active Substance: ADALIMUMAB
     Indication: COLITIS
     Route: 058
     Dates: start: 201512
  2. IMURAN [Concomitant]
     Active Substance: AZATHIOPRINE
     Indication: COLITIS ULCERATIVE
     Route: 048
  3. PREDNISONE. [Concomitant]
     Active Substance: PREDNISONE
     Indication: COLITIS ULCERATIVE
     Route: 048
  4. HUMIRA [Suspect]
     Active Substance: ADALIMUMAB
     Indication: COLITIS ULCERATIVE
     Dosage: DAY 1
     Route: 058
     Dates: start: 20160203, end: 20160203

REACTIONS (6)
  - Colitis ulcerative [Recovering/Resolving]
  - Intervertebral disc protrusion [Unknown]
  - Migraine [Recovered/Resolved]
  - Rash pustular [Unknown]
  - Dizziness [Unknown]
  - Gastritis [Unknown]

NARRATIVE: CASE EVENT DATE: 20160307
